FAERS Safety Report 7578462-0 (Version None)
Quarter: 2011Q2

REPORT INFORMATION
  Report Type: 
  Country: None (occurrence: None)
  Receive Date: 20110622
  Receipt Date: 20110613
  Transmission Date: 20111010
  Serious: Yes (Hospitalization)
  Sender: FDA-Public Use
  Company Number: 2010SP056225

PATIENT
  Age: 24 Year
  Sex: Female
  Weight: 54.4316 kg

DRUGS (3)
  1. IMPLANON [Suspect]
     Indication: CONTRACEPTION
     Dosage: 1 DF; ; SBDE
     Dates: start: 20100730
  2. XANAX [Concomitant]
  3. ZITHROMAX [Concomitant]

REACTIONS (4)
  - VAGINAL HAEMORRHAGE [None]
  - DRUG EXPOSURE DURING PREGNANCY [None]
  - MEDICAL DEVICE COMPLICATION [None]
  - PREGNANCY WITH IMPLANT CONTRACEPTIVE [None]
